FAERS Safety Report 5127101-7 (Version None)
Quarter: 2006Q4

REPORT INFORMATION
  Report Type: 
  Country: None (occurrence: None)
  Receive Date: 20061013
  Receipt Date: 20061005
  Transmission Date: 20070319
  Serious: Yes (Death, Hospitalization)
  Sender: FDA-Public Use
  Company Number: FR-BRISTOL-MYERS SQUIBB COMPANY-13533575

PATIENT
  Age: 61 Year
  Sex: Male
  Weight: 66 kg

DRUGS (1)
  1. AXEPIM INJ [Suspect]
     Indication: MORGANELLA INFECTION
     Dates: start: 20060904, end: 20060916

REACTIONS (3)
  - CONFUSIONAL STATE [None]
  - DEATH [None]
  - DRUG LEVEL INCREASED [None]
